FAERS Safety Report 6938000-X (Version None)
Quarter: 2010Q3

REPORT INFORMATION
  Report Type: 
  Country: None (occurrence: None)
  Receive Date: 20100824
  Receipt Date: 20100812
  Transmission Date: 20110219
  Serious: No
  Sender: FDA-Public Use
  Company Number: 2008BI022428

PATIENT
  Sex: Female

DRUGS (3)
  1. TYSABRI [Suspect]
     Indication: MULTIPLE SCLEROSIS
     Route: 042
     Dates: start: 20070504, end: 20081003
  2. TYSABRI [Suspect]
     Route: 042
     Dates: start: 20081030, end: 20091030
  3. TYSABRI [Suspect]
     Route: 042
     Dates: start: 20100423

REACTIONS (4)
  - ARTHRALGIA [None]
  - FATIGUE [None]
  - INFECTION [None]
  - MULTIPLE SCLEROSIS [None]
